FAERS Safety Report 18599314 (Version 2)
Quarter: 2020Q4

REPORT INFORMATION
  Report Type: Report from Study
  Country: NL (occurrence: NL)
  Receive Date: 20201210
  Receipt Date: 20201222
  Transmission Date: 20210114
  Serious: Yes (Death, Hospitalization, Other)
  Sender: FDA-Public Use
  Company Number: NL-MYLANLABS-2020M1100174

PATIENT
  Age: 65 Year
  Sex: Male

DRUGS (19)
  1. MORPHINE [Suspect]
     Active Substance: MORPHINE
     Indication: PRODUCT USED FOR UNKNOWN INDICATION
     Dosage: UNK
     Route: 065
  2. CALCIUM CARBONATE;COLECALCIFEROL;CO/11775101/ [Concomitant]
     Active Substance: CALCIUM CARBONATE\CHOLECALCIFEROL\MINERALS
     Dosage: 2,5G/880IE (1000MG CA), QD
  3. DUROGESIC [Concomitant]
     Active Substance: FENTANYL
     Dosage: 25UG/HR, 1X PER 3D 2 PLASTERS
  4. XTANDI [Concomitant]
     Active Substance: ENZALUTAMIDE
     Dosage: 40 MILLIGRAM
  5. OMEPRAZOL                          /00661201/ [Concomitant]
     Active Substance: OMEPRAZOLE
     Dosage: 20 MILLIGRAM, QD
  6. XGEVA [Suspect]
     Active Substance: DENOSUMAB
     Indication: PROPHYLAXIS
     Dosage: 120 MILLIGRAM 70MG/ML FLACON 1,7ML, Q4WK
     Route: 058
     Dates: start: 20200508
  7. FENTANYL. [Concomitant]
     Active Substance: FENTANYL
     Dosage: 50 MICROGRAM/HR
  8. OXYCODON [Concomitant]
     Active Substance: OXYCODONE
     Dosage: 30 MILLIGRAM
  9. CIPROFLOXACINE                     /00697201/ [Concomitant]
     Active Substance: CIPROFLOXACIN
     Dosage: 500 MILLIGRAM, BID
  10. OXYCODON [Concomitant]
     Active Substance: OXYCODONE
     Dosage: 20 MILLIGRAM, QD
  11. DEGARELIX [Concomitant]
     Active Substance: DEGARELIX
     Dosage: 80 MILLIGRAM, QMO
  12. OXYCODON [Concomitant]
     Active Substance: OXYCODONE
     Dosage: 40 MILLIGRAM
  13. OXYCODON [Concomitant]
     Active Substance: OXYCODONE
     Dosage: 10 MILLIGRAM, QD
  14. ACETYLSALICYLIC ACID [Concomitant]
     Active Substance: ASPIRIN
     Dosage: 80 MILLIGRAM, QD
  15. PREDNISOLON                        /00016201/ [Concomitant]
     Active Substance: PREDNISOLONE
     Dosage: 5 MILLIGRAM, BID
  16. MOVICOL [Concomitant]
     Active Substance: POLYETHYLENE GLYCOL 3350\POTASSIUM CHLORIDE\SODIUM BICARBONATE\SODIUM CHLORIDE
     Dosage: UNK
  17. XGEVA [Suspect]
     Active Substance: DENOSUMAB
     Dosage: 120 MILLIGRAM, Q4WK, 70 MG/ML
     Route: 058
     Dates: start: 20201106
  18. FENTANYL. [Concomitant]
     Active Substance: FENTANYL
     Dosage: 25 MICROGRAM/HR
  19. LEVOCETIRIZINE [Concomitant]
     Active Substance: LEVOCETIRIZINE
     Dosage: 5 MILLIGRAM, QD

REACTIONS (10)
  - Arthropathy [Unknown]
  - Fatigue [Not Recovered/Not Resolved]
  - Disease progression [Fatal]
  - Bone disorder [Unknown]
  - Tumour pain [Not Recovered/Not Resolved]
  - Gait disturbance [Unknown]
  - Cystitis [Not Recovered/Not Resolved]
  - Inappropriate schedule of product administration [Recovering/Resolving]
  - Asthenia [Not Recovered/Not Resolved]
  - Musculoskeletal disorder [Unknown]

NARRATIVE: CASE EVENT DATE: 20200828
